FAERS Safety Report 8324721-3 (Version None)
Quarter: 2012Q2

REPORT INFORMATION
  Report Type: 
  Country: None (occurrence: None)
  Receive Date: 20120501
  Receipt Date: 20120201
  Transmission Date: 20120825
  Serious: Yes (Hospitalization)
  Sender: FDA-Public Use
  Company Number: US-US-EMD SERONO, INC.-7110717

PATIENT
  Sex: Female

DRUGS (3)
  1. VITAMIN D [Concomitant]
     Indication: PRODUCT USED FOR UNKNOWN INDICATION
  2. REBIF [Suspect]
     Indication: MULTIPLE SCLEROSIS
     Route: 058
     Dates: start: 20110601, end: 20110901
  3. VITAMIN B COMPLEX CAP [Concomitant]
     Indication: PRODUCT USED FOR UNKNOWN INDICATION

REACTIONS (8)
  - URINARY TRACT INFECTION [None]
  - RENAL FAILURE [None]
  - DUODENAL ULCER [None]
  - HAEMOGLOBIN ABNORMAL [None]
  - DEHYDRATION [None]
  - SEPSIS [None]
  - GASTROINTESTINAL ULCER [None]
  - MULTIPLE SCLEROSIS RELAPSE [None]
